FAERS Safety Report 9844849 (Version 1)
Quarter: 2014Q1

REPORT INFORMATION
  Report Type: Spontaneous
  Country: US (occurrence: US)
  Receive Date: 20140127
  Receipt Date: 20140127
  Transmission Date: 20141002
  Serious: Yes (Other)
  Sender: FDA-Public Use
  Company Number: US-GE HEALTHCARE MEDICAL DIAGNOSTICS-OSCN-PR-1311S-0105

PATIENT
  Sex: Female

DRUGS (20)
  1. OMNISCAN [Suspect]
     Indication: HAEMORRHAGE INTRACRANIAL
     Route: 042
     Dates: start: 20050811, end: 20050811
  2. OMNISCAN [Suspect]
     Indication: CEREBROVASCULAR ACCIDENT
     Dates: start: 20090903, end: 20090903
  3. OMNISCAN [Suspect]
     Indication: AMNESIA
  4. GADOLINIUM (UNSPECIFIED) [Suspect]
     Indication: SHUNT MALFUNCTION
     Dates: start: 20000908, end: 20000908
  5. GADOLINIUM (UNSPECIFIED) [Suspect]
     Indication: BACK PAIN
     Dates: start: 20001019, end: 20001019
  6. GADOLINIUM (UNSPECIFIED) [Suspect]
     Indication: LUMBAR VERTEBRAL FRACTURE
     Dates: start: 20020330, end: 20020330
  7. GADOLINIUM (UNSPECIFIED) [Suspect]
     Indication: VIITH NERVE PARALYSIS
     Dates: start: 20040521, end: 20040521
  8. GADOLINIUM (UNSPECIFIED) [Suspect]
     Indication: DYSARTHRIA
     Dates: start: 20041121, end: 20041121
  9. GADOLINIUM (UNSPECIFIED) [Suspect]
     Indication: ARTHRALGIA
     Dates: start: 20060306, end: 20060306
  10. GADOLINIUM (UNSPECIFIED) [Suspect]
     Indication: DIZZINESS
     Dates: start: 20070624, end: 20070624
  11. GADOLINIUM (UNSPECIFIED) [Suspect]
     Indication: VISION BLURRED
     Dates: start: 20071218, end: 20071218
  12. GADOLINIUM (UNSPECIFIED) [Suspect]
     Indication: ARTHRALGIA
     Dates: start: 20080813, end: 20080813
  13. GADOLINIUM (UNSPECIFIED) [Suspect]
     Indication: ARTERIOVENOUS FISTULA SITE COMPLICATION
  14. MAGNEVIST [Suspect]
     Indication: ARTHRALGIA
     Dates: start: 20070807, end: 20070807
  15. MAGNEVIST [Suspect]
     Indication: JOINT SWELLING
  16. OPTIMARK [Suspect]
     Indication: PRODUCT USED FOR UNKNOWN INDICATION
  17. PROHANCE [Suspect]
     Indication: PRODUCT USED FOR UNKNOWN INDICATION
  18. MULTIHANCE [Suspect]
     Indication: PRODUCT USED FOR UNKNOWN INDICATION
  19. EPOGEN [Concomitant]
  20. ARANESP [Concomitant]

REACTIONS (1)
  - Nephrogenic systemic fibrosis [Not Recovered/Not Resolved]
